FAERS Safety Report 4507740-4 (Version None)
Quarter: 2004Q4

REPORT INFORMATION
  Report Type: 
  Country: None (occurrence: None)
  Receive Date: 20041018
  Receipt Date: 20040921
  Transmission Date: 20050328
  Serious: No
  Sender: FDA-Public Use
  Company Number: 206482

PATIENT
  Age: 51 Year
  Sex: Female
  Weight: 71 kg

DRUGS (5)
  1. XOLAIR [Suspect]
     Indication: ASTHMA
     Dosage: 150 MG, 1/MONTH, SUBCUTANEOUS
     Route: 058
     Dates: start: 20040406, end: 20040507
  2. ADVAIR (SALMETEROL XINAFOATE, FLUTICASONE PROPIONATE) [Concomitant]
  3. ALLEGRA-D               (FEXOFENADINE HYDROCHLORIDE, PSEUDOEPHEDRINE H [Concomitant]
  4. QVAR (BECLOMETHASONE DIPROPIONATE) [Concomitant]
  5. SINGULAIR [Concomitant]

REACTIONS (2)
  - DIZZINESS [None]
  - NAUSEA [None]
